FAERS Safety Report 8543963-5 (Version None)
Quarter: 2012Q3

REPORT INFORMATION
  Report Type: 
  Country: None (occurrence: None)
  Receive Date: 20120717
  Receipt Date: 20120709
  Transmission Date: 20120928
  Serious: Yes (Other)
  Sender: FDA-Public Use
  Company Number: JPI-P-021570

PATIENT
  Age: 66 Year
  Sex: Female

DRUGS (2)
  1. XYREM [Suspect]
     Indication: NARCOLEPSY
     Dosage: 6;4 GM (3 GM, 2 IN 1 D), ORAL
     Route: 048
     Dates: start: 20120224
  2. XYREM [Suspect]
     Indication: NARCOLEPSY
     Dosage: 6;4 GM (3 GM, 2 IN 1 D), ORAL
     Route: 048
     Dates: start: 20060524

REACTIONS (9)
  - CIRCADIAN RHYTHM SLEEP DISORDER [None]
  - SOMNAMBULISM [None]
  - SOMNOLENCE [None]
  - ANGLE CLOSURE GLAUCOMA [None]
  - DISTURBANCE IN ATTENTION [None]
  - CATARACT [None]
  - FALL [None]
  - NAUSEA [None]
  - FEELING ABNORMAL [None]
